FAERS Safety Report 5691988-X (Version None)
Quarter: 2008Q2

REPORT INFORMATION
  Report Type: 
  Country: None (occurrence: None)
  Receive Date: 20080402
  Receipt Date: 20080326
  Transmission Date: 20081010
  Serious: Yes (Hospitalization, Other)
  Sender: FDA-Public Use
  Company Number: FR-JNJFOC-20080206549

PATIENT
  Sex: Female
  Weight: 62 kg

DRUGS (7)
  1. RISPERDAL [Suspect]
     Route: 048
  2. RISPERDAL [Suspect]
     Route: 048
  3. RISPERDAL [Suspect]
     Indication: PSYCHOTIC DISORDER
     Route: 048
  4. DEROXAT [Concomitant]
     Indication: AFFECTIVE DISORDER
     Route: 048
  5. INIPOMP [Concomitant]
     Indication: ABDOMINAL PAIN UPPER
     Route: 048
  6. TRIMEPRAZINE TAB [Concomitant]
     Indication: INSOMNIA
     Route: 048
  7. LOXAPAC [Concomitant]
     Indication: AGITATION
     Route: 030

REACTIONS (5)
  - CONVULSION [None]
  - FACIAL BONES FRACTURE [None]
  - FALL [None]
  - SYNCOPE [None]
  - WITHDRAWAL SYNDROME [None]
